FAERS Safety Report 7756989-6 (Version None)
Quarter: 2011Q3

REPORT INFORMATION
  Report Type: 
  Country: None (occurrence: None)
  Receive Date: 20110916
  Receipt Date: 20110916
  Transmission Date: 20111222
  Serious: Yes (Other)
  Sender: FDA-Public Use
  Company Number: None

PATIENT
  Age: 42 Year
  Sex: Female
  Weight: 71.667 kg

DRUGS (1)
  1. TRAMADOL HCL [Suspect]
     Indication: CONTUSION
     Dosage: 1 PILL
     Route: 048
     Dates: start: 20110913, end: 20110914

REACTIONS (2)
  - VOMITING [None]
  - HEADACHE [None]
